FAERS Safety Report 9308518 (Version 5)
Quarter: 2013Q4

REPORT INFORMATION
  Report Type: Spontaneous
  Country: DE (occurrence: DE)
  Receive Date: 20130524
  Receipt Date: 20131111
  Transmission Date: 20140711
  Serious: Yes (Hospitalization, Other)
  Sender: FDA-Public Use
  Company Number: DE-JNJFOC-20130506762

PATIENT
  Age: 73 Year
  Sex: Female
  Weight: 82 kg

DRUGS (11)
  1. RISPERDAL [Suspect]
     Indication: PRODUCT USED FOR UNKNOWN INDICATION
     Dosage: 2.5 MG TOTAL
     Route: 048
     Dates: start: 201301
  2. RISPERDAL [Suspect]
     Indication: PRODUCT USED FOR UNKNOWN INDICATION
     Dosage: 1-0-1
     Route: 048
  3. CODIOVAN [Suspect]
     Indication: PRODUCT USED FOR UNKNOWN INDICATION
     Dosage: 1-0-1
     Route: 048
  4. CODIOVAN [Suspect]
     Indication: PRODUCT USED FOR UNKNOWN INDICATION
     Dosage: 160/12.5, 5 TABLETS
     Route: 048
  5. FUROSEMIDE [Suspect]
     Indication: PRODUCT USED FOR UNKNOWN INDICATION
     Dosage: 5 40 MG TABLETS=200 MG??1/2-0-0
     Route: 048
  6. JODTHYROX [Suspect]
     Indication: PRODUCT USED FOR UNKNOWN INDICATION
     Dosage: 1000 MG TOTAL
     Route: 048
  7. JODTHYROX [Suspect]
     Indication: PRODUCT USED FOR UNKNOWN INDICATION
     Dosage: 1-0-0
     Route: 048
  8. DIGIMERCK [Suspect]
     Indication: PRODUCT USED FOR UNKNOWN INDICATION
     Dosage: 1-0-0
     Route: 048
  9. DIGIMERCK [Suspect]
     Indication: PRODUCT USED FOR UNKNOWN INDICATION
     Dosage: 2.5, 0.1 MG TABLETS
     Route: 048
  10. SERTRALINE [Suspect]
     Indication: PRODUCT USED FOR UNKNOWN INDICATION
     Dosage: 1-0-0
     Route: 048
  11. SERTRALINE [Suspect]
     Indication: PRODUCT USED FOR UNKNOWN INDICATION
     Dosage: 5X 50 MG TABLETS=250 MG
     Route: 048

REACTIONS (10)
  - Suicide attempt [Recovered/Resolved]
  - Ventricular hypertrophy [Unknown]
  - Intentional overdose [Recovered/Resolved]
  - Hyperthyroidism [Unknown]
  - Panic attack [Unknown]
  - Fear [Unknown]
  - Aortic disorder [Unknown]
  - Arrhythmia [Unknown]
  - Bundle branch block right [Unknown]
  - Electrocardiogram abnormal [Unknown]
